FAERS Safety Report 20651112 (Version 4)
Quarter: 2022Q2

REPORT INFORMATION
  Report Type: Report from Study
  Country: US (occurrence: US)
  Receive Date: 20220329
  Receipt Date: 20220510
  Transmission Date: 20220720
  Serious: Yes (Hospitalization, Other)
  Sender: FDA-Public Use
  Company Number: US-ABBVIE-22P-163-4337625-00

PATIENT
  Age: 71 Year
  Sex: Male
  Weight: 109.4 kg

DRUGS (2)
  1. IBRUTINIB [Suspect]
     Active Substance: IBRUTINIB
     Indication: Mantle cell lymphoma
     Route: 048
     Dates: start: 20211022, end: 20220319
  2. CIRMTUZUMAB (UC-961) [Concomitant]
     Indication: Mantle cell lymphoma
     Route: 042
     Dates: start: 20211022

REACTIONS (2)
  - Neutropenia [Recovered/Resolved]
  - Campylobacter gastroenteritis [Recovered/Resolved]

NARRATIVE: CASE EVENT DATE: 20220320
